FAERS Safety Report 6233409-4 (Version None)
Quarter: 2009Q2

REPORT INFORMATION
  Report Type: 
  Country: None (occurrence: None)
  Receive Date: 20090617
  Receipt Date: 20081203
  Transmission Date: 20091009
  Serious: No
  Sender: FDA-Public Use
  Company Number: US-TYCO HEALTHCARE/MALLINCKRODT-T200802050

PATIENT

DRUGS (4)
  1. ULTRATAG [Suspect]
     Indication: RADIOISOTOPE SCAN
     Dosage: UNK
     Route: 042
     Dates: start: 20081202, end: 20081202
  2. ULTRATAG [Suspect]
     Dosage: UNK
     Dates: start: 20081203, end: 20081203
  3. ULTRA-TECHNEKOW [Concomitant]
     Indication: RADIOISOTOPE SCAN
     Dosage: 23 MCI, SINGLE
     Route: 042
     Dates: start: 20081202, end: 20081202
  4. ULTRA-TECHNEKOW [Concomitant]
     Dosage: 25-30 MCI
     Dates: start: 20081203, end: 20081203

REACTIONS (1)
  - DRUG INEFFECTIVE [None]
